FAERS Safety Report 22161665 (Version 2)
Quarter: 2023Q2

REPORT INFORMATION
  Report Type: Report from Study
  Country: GB (occurrence: None)
  Receive Date: 20230331
  Receipt Date: 20230406
  Transmission Date: 20230722
  Serious: Yes (Death)
  Sender: FDA-Public Use
  Company Number: GB-Eisai Medical Research-EC-2023-137513

PATIENT
  Age: 58 Year
  Sex: Female
  Weight: 36.7 kg

DRUGS (12)
  1. LENVATINIB [Suspect]
     Active Substance: LENVATINIB
     Indication: Non-small cell lung cancer metastatic
     Dosage: START ON 20MG THEN FLUCTUATED DOSE
     Route: 048
     Dates: start: 20220309, end: 20230325
  2. LENVATINIB [Suspect]
     Active Substance: LENVATINIB
     Indication: Malignant neoplasm progression
  3. PEMBROLIZUMAB [Suspect]
     Active Substance: PEMBROLIZUMAB
     Indication: Non-small cell lung cancer metastatic
     Route: 042
     Dates: start: 20220309, end: 20230308
  4. PEMBROLIZUMAB [Suspect]
     Active Substance: PEMBROLIZUMAB
     Indication: Malignant neoplasm progression
  5. ACETAMINOPHEN [Concomitant]
     Active Substance: ACETAMINOPHEN
     Dates: start: 202107
  6. KETOPROFEN [Concomitant]
     Active Substance: KETOPROFEN
     Dates: start: 202107
  7. DIETARY SUPPLEMENT [Concomitant]
     Active Substance: DIETARY SUPPLEMENT
     Dates: start: 20220815
  8. FORTIJUICE [Concomitant]
     Dates: start: 20220815
  9. DENOSUMAB [Concomitant]
     Active Substance: DENOSUMAB
     Dates: start: 20220720
  10. CALCIUM CARBONATE\CHOLECALCIFEROL [Concomitant]
     Active Substance: CALCIUM CARBONATE\CHOLECALCIFEROL
     Dates: start: 20220510
  11. RAMIPRIL [Concomitant]
     Active Substance: RAMIPRIL
     Dates: start: 20221122
  12. LEVOTHYROXINE SODIUM [Concomitant]
     Active Substance: LEVOTHYROXINE SODIUM
     Dates: start: 20221125

REACTIONS (1)
  - Malignant neoplasm progression [Fatal]

NARRATIVE: CASE EVENT DATE: 20230325
